FAERS Safety Report 20851934 (Version 3)
Quarter: 2022Q2

REPORT INFORMATION
  Report Type: Spontaneous
  Country: PL (occurrence: PL)
  Receive Date: 20220520
  Receipt Date: 20220606
  Transmission Date: 20220721
  Serious: Yes (Other)
  Sender: FDA-Public Use
  Company Number: PL-SA-SAC20220518000887

PATIENT
  Age: 7 Month
  Sex: Male
  Weight: 1.55 kg

DRUGS (1)
  1. MYOZYME [Suspect]
     Active Substance: ALGLUCOSIDASE ALFA
     Indication: Glycogen storage disease type II
     Dosage: 7 ML (ML/H)
     Route: 065
     Dates: start: 2018

REACTIONS (5)
  - Neonatal hypoxia [Unknown]
  - Arrhythmia [Recovered/Resolved]
  - Asthenia [Unknown]
  - Pallor [Unknown]
  - Vomiting [Unknown]

NARRATIVE: CASE EVENT DATE: 20190213
